FAERS Safety Report 5046594-7 (Version None)
Quarter: 2006Q3

REPORT INFORMATION
  Report Type: 
  Country: None (occurrence: None)
  Receive Date: 20060705
  Receipt Date: 20060705
  Transmission Date: 20061208
  Serious: Yes (Hospitalization)
  Sender: FDA-Public Use
  Company Number: None

PATIENT
  Sex: Male
  Weight: 89.5 kg

DRUGS (2)
  1. FLUOROURACIL [Suspect]
     Dosage: 6750 MG
     Dates: start: 20060626
  2. ELOXATIN [Suspect]
     Dosage: 400 MG
     Dates: start: 20060626

REACTIONS (9)
  - BLOOD CREATININE INCREASED [None]
  - CHILLS [None]
  - HYPOTENSION [None]
  - NAUSEA [None]
  - PYREXIA [None]
  - SEPSIS [None]
  - TREMOR [None]
  - URINE OUTPUT DECREASED [None]
  - VOMITING [None]
